FAERS Safety Report 10143183 (Version 1)
Quarter: 2014Q2

REPORT INFORMATION
  Report Type: Spontaneous
  Country: US (occurrence: None)
  Receive Date: 20140428
  Receipt Date: 20140428
  Transmission Date: 20141212
  Serious: Yes (Other)
  Sender: FDA-Public Use
  Company Number: ADR-2013-00103

PATIENT
  Sex: Male

DRUGS (3)
  1. BACLOFEN INTRATHECAL [Suspect]
     Indication: SPINAL PAIN
  2. HYDROMORPHONE [Suspect]
  3. BUPIVACAINE INTRATHECAL [Suspect]

REACTIONS (15)
  - Pain [None]
  - Procedural complication [None]
  - Screaming [None]
  - Cerebrospinal fluid leakage [None]
  - Sciatica [None]
  - Headache [None]
  - Neck pain [None]
  - Pain in extremity [None]
  - Drug withdrawal syndrome [None]
  - Euphoric mood [None]
  - Feeling hot [None]
  - Vomiting [None]
  - Diarrhoea [None]
  - Malaise [None]
  - Loss of consciousness [None]
